FAERS Safety Report 19934513 (Version 1)
Quarter: 2021Q4

REPORT INFORMATION
  Report Type: Spontaneous
  Country: CN (occurrence: CN)
  Receive Date: 20211008
  Receipt Date: 20211008
  Transmission Date: 20220304
  Serious: Yes (Hospitalization)
  Sender: FDA-Public Use
  Company Number: CN-BAXTER-2021BAX024725

PATIENT
  Age: 7 Year
  Sex: Male
  Weight: 35 kg

DRUGS (24)
  1. CYCLOPHOSPHAMIDE [Suspect]
     Active Substance: CYCLOPHOSPHAMIDE
     Indication: Ganglioneuroma
     Dosage: CYCLOPHOSPHAMIDE FOR INJECTION 1150 MG + 0.9% SODIUM CHLORIDE INJECTION 400ML
     Route: 041
     Dates: start: 20191223, end: 20191223
  2. CYCLOPHOSPHAMIDE [Suspect]
     Active Substance: CYCLOPHOSPHAMIDE
     Dosage: DOSE RE-INTRODUCED;
     Route: 041
  3. SODIUM CHLORIDE [Suspect]
     Active Substance: SODIUM CHLORIDE
     Indication: Medication dilution
     Dosage: DILUENT FOR CYCLOPHOSPHAMIDE (OVER 2 HOURS)
     Route: 041
     Dates: start: 20191223, end: 20191223
  4. SODIUM CHLORIDE [Suspect]
     Active Substance: SODIUM CHLORIDE
     Dosage: DILUENT FOR ETOPOSIDE;
     Route: 041
     Dates: start: 20191223, end: 20191225
  5. SODIUM CHLORIDE [Suspect]
     Active Substance: SODIUM CHLORIDE
     Dosage: DILUENT FOR ETOPOSIDE;
     Route: 041
     Dates: start: 20191223, end: 20191225
  6. SODIUM CHLORIDE [Suspect]
     Active Substance: SODIUM CHLORIDE
     Dosage: DOSE RE-INTRODUCED FOR CYCLOPHOSPHAMIDE;
     Route: 041
  7. SODIUM CHLORIDE [Suspect]
     Active Substance: SODIUM CHLORIDE
     Dosage: DOSE RE-INTRODUCED FOR ETOPOSIDE;
     Route: 041
  8. MESNA [Suspect]
     Active Substance: MESNA
     Indication: Detoxification
     Dosage: MESNA INJECTION 250 MG + 5% GLUCOSE INJECTION 50ML; [FREQUENCY: BEFORE CYCLOPHOSPHAMIDE, AFTER CYCLO
     Route: 041
     Dates: start: 20191222, end: 20191223
  9. MESNA [Suspect]
     Active Substance: MESNA
     Dosage: DOSE RE-INTRODUCED;
     Route: 041
  10. DEXTROSE [Suspect]
     Active Substance: DEXTROSE
     Indication: Medication dilution
     Dosage: DILUENT WITH MESNA; [FREQUENCY: BEFORE CYCLOPHOSPHAMIDE, AFTER CYCLOPHOSPHAMIDE, 3 HOURS AFTER CYCLO
     Route: 041
     Dates: start: 20191222, end: 20191223
  11. DEXTROSE [Suspect]
     Active Substance: DEXTROSE
     Dosage: DOSE RE-INTRODUCED;
     Route: 041
  12. ETOPOSIDE [Suspect]
     Active Substance: ETOPOSIDE
     Indication: Ganglioneuroma
     Dosage: ETOPOSIDE INJECTION 0.038G + 0.9% SODIUM CHLORIDE INJECTION 250ML
     Route: 041
     Dates: start: 20191223, end: 20191225
  13. ETOPOSIDE [Suspect]
     Active Substance: ETOPOSIDE
     Dosage: ETOPOSIDE INJECTION 0.1G + 0.9% SODIUM CHLORIDE INJECTION 250ML
     Route: 041
     Dates: start: 20191223, end: 20191225
  14. ETOPOSIDE [Suspect]
     Active Substance: ETOPOSIDE
     Dosage: DOSE RE-INTRODUCED;
     Route: 041
  15. PRILOSEC [Suspect]
     Active Substance: OMEPRAZOLE MAGNESIUM
     Indication: Prophylaxis
     Route: 041
     Dates: start: 20191222, end: 20191227
  16. PRILOSEC [Suspect]
     Active Substance: OMEPRAZOLE MAGNESIUM
     Dosage: DOSE RE-INTRODUCED;
     Route: 041
  17. UBIDECARENONE [Suspect]
     Active Substance: UBIDECARENONE
     Indication: Prophylaxis
     Dosage: TABLETS:
     Route: 048
     Dates: start: 20191222, end: 20200101
  18. UBIDECARENONE [Suspect]
     Active Substance: UBIDECARENONE
     Dosage: TABLETS; DOSE RE-INTRODUCED;
     Route: 048
  19. GLUTATHIONE [Suspect]
     Active Substance: GLUTATHIONE
     Indication: Prophylaxis
     Dosage: REDUCED GLUTATHIONE INJECTION 100ML + 5% GLUCOSE INJECTION 100ML
     Route: 041
     Dates: start: 20191222, end: 20191230
  20. GLUTATHIONE [Suspect]
     Active Substance: GLUTATHIONE
     Dosage: DOSE RE-INTRODUCED;
     Route: 041
  21. TROPISETRON HYDROCHLORIDE [Suspect]
     Active Substance: TROPISETRON HYDROCHLORIDE
     Indication: Antiemetic supportive care
     Dosage: TROPISETRON HYDROCHLORIDE INJECTION 5 MG + 5% GLUCOSE INJECTION 100ML
     Route: 041
     Dates: start: 20191222, end: 20191227
  22. TROPISETRON HYDROCHLORIDE [Suspect]
     Active Substance: TROPISETRON HYDROCHLORIDE
     Dosage: DOSE RE-INTRODUCED;
     Route: 041
  23. VITAMIN C [Concomitant]
     Active Substance: ASCORBIC ACID
     Indication: Product used for unknown indication
     Route: 041
     Dates: start: 20191222, end: 20191227
  24. VITAMIN B6 [Concomitant]
     Active Substance: PYRIDOXINE HYDROCHLORIDE
     Indication: Product used for unknown indication
     Dosage: VITAMIN B6 INJECTION 100 MG + 5% GLUCOSE INJECTION 100ML
     Route: 041
     Dates: start: 20191222, end: 20191227

REACTIONS (2)
  - Hepatic function abnormal [Recovering/Resolving]
  - Myelosuppression [Recovering/Resolving]

NARRATIVE: CASE EVENT DATE: 20191227
